FAERS Safety Report 23442969 (Version 1)
Quarter: 2024Q1

REPORT INFORMATION
  Report Type: Spontaneous
  Country: PL (occurrence: PL)
  Receive Date: 20240125
  Receipt Date: 20240125
  Transmission Date: 20240409
  Serious: Yes (Death, Other)
  Sender: FDA-Public Use
  Company Number: PL-BRISTOL-MYERS SQUIBB COMPANY-2024-013182

PATIENT
  Age: 78 Year
  Sex: Female
  Weight: 72 kg

DRUGS (2)
  1. NIVOLUMAB [Suspect]
     Active Substance: NIVOLUMAB
     Indication: Pleural mesothelioma
     Dosage: DOSE : NIVO 210MG (3MG/KG ),  IPI 70MG (1MG/KG );     FREQ : NIVO EVERY 3 WEEKS, IPI EVERY 6 WEEKS
     Route: 042
     Dates: start: 20211214
  2. IPILIMUMAB [Suspect]
     Active Substance: IPILIMUMAB
     Indication: Pleural mesothelioma
     Dosage: DOSE : NIVO 210MG (3MG/KG ),  IPI 70MG (1MG/KG );     FREQ : NIVO EVERY 3 WEEKS, IPI EVERY 6 WEEKS
     Route: 042
     Dates: start: 20211214

REACTIONS (1)
  - Death [Fatal]

NARRATIVE: CASE EVENT DATE: 20220114
